FAERS Safety Report 10313807 (Version 3)
Quarter: 2014Q3

REPORT INFORMATION
  Report Type: Spontaneous
  Country: US (occurrence: None)
  Receive Date: 20140716
  Receipt Date: 20140904
  Transmission Date: 20150326
  Serious: Yes (Death, Hospitalization)
  Sender: FDA-Public Use
  Company Number: US-H14001-14-00198

PATIENT
  Age: 80 Year
  Sex: Male
  Weight: 89 kg

DRUGS (5)
  1. LANOXIN (DOGOXIN) [Concomitant]
  2. CORDARONE [Suspect]
     Active Substance: AMIODARONE HYDROCHLORIDE
     Indication: ATRIAL FIBRILLATION
     Dosage: (0.5 MG/MIN)
     Route: 042
     Dates: start: 20131004, end: 20131008
  3. CARDIZEM [Concomitant]
     Active Substance: DILTIAZEM HYDROCHLORIDE
  4. CORDARONE [Suspect]
     Active Substance: AMIODARONE HYDROCHLORIDE
     Indication: ATRIAL FIBRILLATION
     Dosage: 1200MG, (400MG, 3 IN 1D)
     Route: 048
     Dates: start: 20131008, end: 20131015
  5. LASIX [Concomitant]
     Active Substance: FUROSEMIDE

REACTIONS (12)
  - Pulmonary toxicity [None]
  - Neutrophilia [None]
  - Cough [None]
  - Red blood cell sedimentation rate increased [None]
  - Pulmonary arterial pressure increased [None]
  - Syncope [None]
  - Hypoxia [None]
  - Wheezing [None]
  - Dyspnoea [None]
  - Rales [None]
  - Leukocytosis [None]
  - Prescribed overdose [None]

NARRATIVE: CASE EVENT DATE: 20131015
